FAERS Safety Report 4358279-0 (Version None)
Quarter: 2004Q2

REPORT INFORMATION
  Report Type: 
  Country: None (occurrence: None)
  Receive Date: 20040510
  Receipt Date: 20040429
  Transmission Date: 20050107
  Serious: No
  Sender: FDA-Public Use
  Company Number: 2004-113446-NL

PATIENT
  Age: 56 Year
  Sex: Female

DRUGS (1)
  1. MIRTAZAPINE [Suspect]
     Indication: INSOMNIA
     Dosage: 7.5 MG QD ORAL
     Route: 048
     Dates: start: 20031125

REACTIONS (1)
  - BRADYCARDIA [None]
